FAERS Safety Report 16634644 (Version 1)
Quarter: 2019Q3

REPORT INFORMATION
  Report Type: Spontaneous
  Country: FR (occurrence: FR)
  Receive Date: 20190726
  Receipt Date: 20190726
  Transmission Date: 20191004
  Serious: Yes (Other)
  Sender: FDA-Public Use
  Company Number: FR-SUN PHARMACEUTICAL INDUSTRIES LTD-2019R1-214908

PATIENT

DRUGS (10)
  1. SULFATE DE TERBUTALINE [Concomitant]
     Indication: RESPIRATORY TRACT INFLAMMATION
     Dosage: UNK
     Route: 055
  2. VERSATIS 5 %, EMPLATRE MEDICAMENTEUX [Concomitant]
     Active Substance: LIDOCAINE
     Indication: CANCER PAIN
     Dosage: 1 DOSAGE FORM, DAILY
     Route: 003
  3. PARACETAMOL [Concomitant]
     Active Substance: ACETAMINOPHEN
     Indication: CANCER PAIN
     Dosage: UNK
     Route: 048
  4. PREGABALINE [Concomitant]
     Active Substance: PREGABALIN
     Indication: CANCER PAIN
     Dosage: 600 MILLIGRAM, DAILY
     Route: 048
     Dates: start: 2016
  5. ONBREZ BREEZHALER 150 MICROGRAMMES, POUDRE POUR INHALATION EN GELULE [Concomitant]
     Indication: RESPIRATORY TRACT INFLAMMATION
     Dosage: ()
     Route: 055
  6. MOVICOL [Concomitant]
     Active Substance: POLYETHYLENE GLYCOL 3350\POTASSIUM CHLORIDE\SODIUM BICARBONATE\SODIUM CHLORIDE
     Indication: CONSTIPATION
     Dosage: 2 DOSAGE FORM, DAILY
     Route: 048
  7. SKENAN [Concomitant]
     Active Substance: MORPHINE SULFATE
     Indication: CANCER PAIN
     Dosage: 80 MILLIGRAM, DAILY
     Route: 048
     Dates: start: 201711
  8. AZITHROMYCINE DIHYDRATE [Concomitant]
     Indication: RESPIRATORY TRACT INFLAMMATION
     Dosage: AZITHROMYCINE 250 MG/J LUNDI-MERCREDI-VENDREDI
     Route: 048
     Dates: start: 201712
  9. FRAXIPARINE [Concomitant]
     Active Substance: NADROPARIN CALCIUM
     Indication: THROMBOSIS PROPHYLAXIS
     Dosage: SOIT 0.3 ML
     Route: 058
  10. SERTRALINE [Suspect]
     Active Substance: SERTRALINE HYDROCHLORIDE
     Indication: ANXIETY
     Dosage: 25 MILLIGRAM, DAILY
     Route: 048
     Dates: start: 20170519, end: 20180119

REACTIONS (1)
  - Cholestasis [Recovered/Resolved]

NARRATIVE: CASE EVENT DATE: 20171030
